APPROVED DRUG PRODUCT: PALIPERIDONE
Active Ingredient: PALIPERIDONE
Strength: 3MG
Dosage Form/Route: TABLET, EXTENDED RELEASE;ORAL
Application: A202645 | Product #002
Applicant: ACTAVIS LABORATORIES FL INC
Approved: Aug 3, 2015 | RLD: No | RS: No | Type: DISCN